FAERS Safety Report 8569750 (Version 2)
Quarter: 2012Q4

REPORT INFORMATION
  Report Type: 
  Country: BR (occurrence: BR)
  Receive Date: 20120518
  Receipt Date: 20121108
  Transmission Date: 20130627
  Serious: Yes (Hospitalization)
  Sender: FDA-Public Use
  Company Number: BR-ASTRAZENECA-2012SE30472

PATIENT
  Age: 68 Year
  Sex: Male

DRUGS (6)
  1. ATACAND [Suspect]
     Route: 048
     Dates: start: 2009
  2. SELOZOK [Suspect]
     Route: 048
  3. CARDIZEM [Concomitant]
  4. CARDIZEM [Concomitant]
  5. GLIFAGE [Concomitant]
  6. BUFFERIN [Concomitant]

REACTIONS (1)
  - Arterial occlusive disease [Recovered/Resolved]
